FAERS Safety Report 10952775 (Version 1)
Quarter: 2015Q1

REPORT INFORMATION
  Report Type: Spontaneous
  Country: US (occurrence: None)
  Receive Date: 20150226
  Receipt Date: 20150226
  Transmission Date: 20150721
  Serious: Yes (Hospitalization)
  Sender: FDA-Public Use
  Company Number: TAP2006Q00782

PATIENT
  Age: 49 Year
  Sex: Male
  Weight: 102.1 kg

DRUGS (1)
  1. PREVACID [Suspect]
     Active Substance: LANSOPRAZOLE
     Indication: GASTROOESOPHAGEAL REFLUX DISEASE
     Route: 048
     Dates: start: 200511, end: 200602

REACTIONS (2)
  - Pyrexia [None]
  - Pharyngeal oedema [None]

NARRATIVE: CASE EVENT DATE: 200602
